FAERS Safety Report 9558264 (Version 3)
Quarter: 2013Q4

REPORT INFORMATION
  Report Type: Spontaneous
  Country: US (occurrence: US)
  Receive Date: 20130926
  Receipt Date: 20131118
  Transmission Date: 20140711
  Serious: No
  Sender: FDA-Public Use
  Company Number: US-009507513-1309USA012947

PATIENT
  Age: 21 Year
  Sex: Female
  Weight: 58.96 kg

DRUGS (3)
  1. CLARITIN [Suspect]
     Indication: HOUSE DUST ALLERGY
     Dosage: 10 MG, QD
     Route: 048
     Dates: start: 201305, end: 201307
  2. CLARITIN [Suspect]
     Indication: ALLERGY TO ANIMAL
  3. CLARITIN [Suspect]
     Indication: SEASONAL ALLERGY

REACTIONS (1)
  - Drug ineffective [Unknown]
